FAERS Safety Report 12769817 (Version 18)
Quarter: 2017Q3

REPORT INFORMATION
  Report Type: Report from Study
  Country: MX (occurrence: MX)
  Receive Date: 20160922
  Receipt Date: 20170710
  Transmission Date: 20171127
  Serious: Yes (Life-Threatening, Hospitalization)
  Sender: FDA-Public Use
  Company Number: MX-ROCHE-1829507

PATIENT
  Age: 53 Year
  Sex: Female
  Weight: 60 kg

DRUGS (10)
  1. INSULINE [Concomitant]
     Active Substance: INSULIN NOS
     Indication: BLOOD GLUCOSE INCREASED
     Route: 065
     Dates: start: 20160830, end: 20160905
  2. PERTUZUMAB. [Suspect]
     Active Substance: PERTUZUMAB
     Indication: HER-2 POSITIVE BREAST CANCER
     Dosage: LOADING DOSE?MOST RECENT DOSE PRIOR TO EVENT ONSET ON 10/AUG/2016
     Route: 042
     Dates: start: 20160810
  3. OMEPRAZOL [Concomitant]
     Active Substance: OMEPRAZOLE
     Indication: PROPHYLAXIS
     Route: 065
     Dates: start: 20160816, end: 20160823
  4. TRAMADOL. [Concomitant]
     Active Substance: TRAMADOL
     Indication: ORAL PAIN
     Route: 065
     Dates: start: 20160818, end: 20160823
  5. NITROFURAL [Concomitant]
     Route: 065
     Dates: start: 20160830, end: 20160831
  6. PARACETAMOL [Concomitant]
     Active Substance: ACETAMINOPHEN
     Indication: PYREXIA
     Route: 065
     Dates: start: 20160816, end: 20160823
  7. TRASTUZUMAB. [Suspect]
     Active Substance: TRASTUZUMAB
     Indication: HER-2 POSITIVE BREAST CANCER
     Dosage: MOST RECENT DOSE ON 10/AUG/2016 (600MG) PRIOR TO EVENT ONSET
     Route: 058
     Dates: start: 20160810
  8. DOCETAXEL. [Suspect]
     Active Substance: DOCETAXEL
     Indication: HER-2 POSITIVE BREAST CANCER
     Dosage: MOST RECENT DOSE ON 10/AUG/2016 PRIOR TO EVENT ONSET
     Route: 042
     Dates: start: 20160810
  9. DOMEBORO [Concomitant]
     Active Substance: ALUMINUM ACETATE
     Indication: PROPHYLAXIS
     Route: 065
     Dates: start: 20160830, end: 20160904
  10. FLUCONAZOL [Concomitant]
     Active Substance: FLUCONAZOLE
     Indication: PROPHYLAXIS
     Route: 065
     Dates: start: 20160816, end: 20160823

REACTIONS (4)
  - Pancreatitis [Recovered/Resolved]
  - Electrolyte imbalance [Recovered/Resolved]
  - Stomatitis [Recovered/Resolved]
  - Febrile neutropenia [Recovered/Resolved]

NARRATIVE: CASE EVENT DATE: 20160816
